FAERS Safety Report 18388823 (Version 5)
Quarter: 2020Q4

REPORT INFORMATION
  Report Type: Report from Study
  Country: None (occurrence: US)
  Receive Date: 20201015
  Receipt Date: 20201229
  Transmission Date: 20210114
  Serious: No
  Sender: FDA-Public Use
  Company Number: US-BIOVITRUM-2020US4937

PATIENT
  Age: 7 Year
  Sex: Male

DRUGS (6)
  1. EMLA [Concomitant]
     Active Substance: LIDOCAINE\PRILOCAINE
     Indication: PRODUCT USED FOR UNKNOWN INDICATION
  2. KINERET [Suspect]
     Active Substance: ANAKINRA
  3. KINERET [Suspect]
     Active Substance: ANAKINRA
  4. KINERET [Suspect]
     Active Substance: ANAKINRA
     Indication: PYREXIA
     Route: 058
     Dates: start: 20200913
  5. KINERET [Suspect]
     Active Substance: ANAKINRA
  6. KINERET [Suspect]
     Active Substance: ANAKINRA
     Route: 058
     Dates: start: 20200904

REACTIONS (13)
  - Crying [Unknown]
  - Nausea [Unknown]
  - Groin pain [Unknown]
  - Anger [Unknown]
  - Injection site urticaria [Unknown]
  - Injection site pain [Unknown]
  - Irritability [Unknown]
  - Product quality issue [Unknown]
  - Vomiting [Unknown]
  - Injection site haemorrhage [Unknown]
  - Pyrexia [Unknown]
  - Injection site swelling [Unknown]
  - Off label use [Unknown]

NARRATIVE: CASE EVENT DATE: 20200904
